FAERS Safety Report 19712457 (Version 2)
Quarter: 2021Q3

REPORT INFORMATION
  Report Type: Spontaneous
  Country: US (occurrence: US)
  Receive Date: 20210817
  Receipt Date: 20210826
  Transmission Date: 20211014
  Serious: Yes (Other)
  Sender: FDA-Public Use
  Company Number: US-009507513-2108USA003462

PATIENT
  Age: 75 Year
  Sex: Female
  Weight: 48.98 kg

DRUGS (6)
  1. FOLFIRI [Suspect]
     Active Substance: FLUOROURACIL\IRINOTECAN\LEUCOVORIN
     Indication: OESOPHAGEAL ADENOCARCINOMA
  2. FLUOROURACIL. [Concomitant]
     Active Substance: FLUOROURACIL
  3. HERCEPTIN [Concomitant]
     Active Substance: TRASTUZUMAB
  4. LEUCOVORINA [Concomitant]
     Active Substance: LEUCOVORIN CALCIUM
  5. KEYTRUDA [Suspect]
     Active Substance: PEMBROLIZUMAB
     Indication: OESOPHAGEAL ADENOCARCINOMA
     Dosage: 400 MG EVERY 6 WEEKS, 11 CYCLES
     Route: 042
     Dates: start: 20200619, end: 20210812
  6. IRINOTECAN [Concomitant]
     Active Substance: IRINOTECAN

REACTIONS (3)
  - Hypotension [Unknown]
  - Product use issue [Unknown]
  - Autonomic neuropathy [Unknown]

NARRATIVE: CASE EVENT DATE: 20200619
